FAERS Safety Report 23063131 (Version 1)
Quarter: 2023Q4

REPORT INFORMATION
  Report Type: Spontaneous
  Country: NL (occurrence: NL)
  Receive Date: 20231013
  Receipt Date: 20231013
  Transmission Date: 20240110
  Serious: Yes (Life-Threatening, Other)
  Sender: FDA-Public Use
  Company Number: NL-LRB-00913148

PATIENT
  Age: 53 Year
  Sex: Male
  Weight: 92 kg

DRUGS (2)
  1. XYLOMETAZOLINE HYDROCHLORIDE [Suspect]
     Active Substance: XYLOMETAZOLINE HYDROCHLORIDE
     Indication: Nasal congestion
     Dosage: 4 DOSAGE FORM, ONCE A DAY (2 AND IF NECESSARY MAX 4 SPRAYS PER DAY PER NOSTRIL)
     Route: 065
     Dates: start: 20080101
  2. SOTALOL HYDROCHLORIDE [Suspect]
     Active Substance: SOTALOL HYDROCHLORIDE
     Indication: Cardiac disorder
     Dosage: 160 MILLIGRAM, TWO TIMES A DAY (2X 160 PER DAY, TOTAL PER DAY 320MG)
     Route: 065
     Dates: start: 20220401

REACTIONS (1)
  - Cardiac arrest [Recovered/Resolved]
